FAERS Safety Report 21449776 (Version 1)
Quarter: 2022Q4

REPORT INFORMATION
  Report Type: Spontaneous
  Country: US (occurrence: US)
  Receive Date: 20221013
  Receipt Date: 20221013
  Transmission Date: 20230113
  Serious: Yes (Other)
  Sender: FDA-Public Use
  Company Number: US-STRIDES ARCOLAB LIMITED-2022SP000273

PATIENT
  Age: 68 Year
  Sex: Female

DRUGS (20)
  1. POLYETHYLENE GLYCOL 3350 [Suspect]
     Active Substance: POLYETHYLENE GLYCOL 3350
     Indication: Constipation
     Dosage: UNK UNK, BID
     Route: 065
  2. GLYCERIN [Suspect]
     Active Substance: GLYCERIN
     Indication: Constipation
     Dosage: UNK
     Route: 065
  3. HYDROCODONE [Concomitant]
     Active Substance: HYDROCODONE
     Indication: Pain
     Dosage: 7.5 MILLIGRAM, QID
     Route: 065
  4. ALBUTEROL\IPRATROPIUM [Concomitant]
     Active Substance: ALBUTEROL\IPRATROPIUM
     Indication: Chronic obstructive pulmonary disease
     Dosage: 2.5-0.5 MG/3 ML TWO TO THREE TIMES DAILY
     Route: 065
  5. LORATADINE [Concomitant]
     Active Substance: LORATADINE
     Indication: Product used for unknown indication
     Dosage: DAILY AS NEEDED
     Route: 065
  6. DICLOFENAC SODIUM [Concomitant]
     Active Substance: DICLOFENAC SODIUM
     Indication: Product used for unknown indication
     Dosage: UNK
     Route: 062
  7. DULOXETINE [Concomitant]
     Active Substance: DULOXETINE
     Indication: Product used for unknown indication
     Dosage: 60 MILLIGRAM, AT BED TIME
     Route: 065
  8. ESTRADIOL [Concomitant]
     Active Substance: ESTRADIOL
     Indication: Lichen sclerosus
     Dosage: TWICE WEEKLY
     Route: 067
  9. LAMOTRIGINE [Concomitant]
     Active Substance: LAMOTRIGINE
     Indication: Product used for unknown indication
     Dosage: 100 MG EXTENDED-RELEASE (XR) EVERY MORNING AND 200 MG XR EVERY AFTERNOON OR EVENING
     Route: 065
  10. LEVOTHYROXINE [Concomitant]
     Active Substance: LEVOTHYROXINE
     Indication: Hypothyroidism
     Dosage: 75 MICROGRAM, QD
     Route: 065
  11. METFORMIN [Concomitant]
     Active Substance: METFORMIN HYDROCHLORIDE
     Indication: Type 2 diabetes mellitus
     Dosage: 500 MILLIGRAM, BID
     Route: 065
  12. METHYLPHENIDATE [Concomitant]
     Active Substance: METHYLPHENIDATE
     Indication: Product used for unknown indication
     Dosage: 5 MILLIGRAM, BID
     Route: 065
  13. OMEPRAZOLE [Concomitant]
     Active Substance: OMEPRAZOLE
     Indication: Gastrooesophageal reflux disease
     Dosage: 20 MILLIGRAM, QD
     Route: 065
  14. RISPERIDONE [Concomitant]
     Active Substance: RISPERIDONE
     Indication: Product used for unknown indication
     Dosage: 0.25 MILLIGRAM, BID
     Route: 065
  15. GABAPENTIN [Concomitant]
     Active Substance: GABAPENTIN
     Indication: Product used for unknown indication
     Dosage: 300 MILLIGRAM, BID
     Route: 048
  16. METHADONE [Concomitant]
     Active Substance: METHADONE HYDROCHLORIDE
     Indication: Pain
     Dosage: 5 MILLIGRAM, BID
     Route: 065
  17. METHADONE [Concomitant]
     Active Substance: METHADONE HYDROCHLORIDE
     Dosage: 2.5 MG IN THE MORNING, 5 MG IN AFTERNOON AND 2.5 MG IN THE EVENING
     Route: 065
  18. METHADONE [Concomitant]
     Active Substance: METHADONE HYDROCHLORIDE
     Dosage: 5 MG IN THE MORNING, 5 MG IN THE AFTERNOON AND 2.5 MG IN THE EVENING.
     Route: 065
  19. LACTULOSE [Concomitant]
     Active Substance: LACTULOSE
     Indication: Constipation
     Dosage: 10G/15 ML, TID
     Route: 048
  20. SENNA [Concomitant]
     Active Substance: SENNA LEAF\SENNOSIDES\SENNOSIDES A AND B
     Indication: Constipation
     Dosage: 8.6-50 MG, TID
     Route: 048

REACTIONS (1)
  - Drug ineffective [Unknown]
